FAERS Safety Report 18969569 (Version 1)
Quarter: 2021Q1

REPORT INFORMATION
  Report Type: Spontaneous
  Country: US (occurrence: US)
  Receive Date: 20210304
  Receipt Date: 20210304
  Transmission Date: 20210420
  Serious: Yes (Disabling, Other)
  Sender: FDA-Public Use
  Company Number: None

PATIENT
  Age: 41 Year
  Sex: Female

DRUGS (3)
  1. RISPERDAL [Suspect]
     Active Substance: RISPERIDONE
     Indication: BIPOLAR DISORDER
     Route: 048
     Dates: start: 20151016, end: 20170522
  2. BOTOX [Concomitant]
     Active Substance: ONABOTULINUMTOXINA
  3. MULTIVITAMINS [Concomitant]
     Active Substance: VITAMINS

REACTIONS (5)
  - Excessive eye blinking [None]
  - Blepharospasm [None]
  - Tremor [None]
  - Choking [None]
  - Meige^s syndrome [None]

NARRATIVE: CASE EVENT DATE: 20190416
